FAERS Safety Report 5128367-X (Version None)
Quarter: 2006Q4

REPORT INFORMATION
  Report Type: 
  Country: None (occurrence: None)
  Receive Date: 20061011
  Receipt Date: 20060928
  Transmission Date: 20070319
  Serious: Yes (Other)
  Sender: FDA-Public Use
  Company Number: 2006117165

PATIENT
  Age: 76 Year
  Sex: Male

DRUGS (2)
  1. VIAGRA [Suspect]
     Dosage: (50 MG, AS NECESSARY), ORAL
     Route: 048
     Dates: end: 20050101
  2. WARFARIN SODIUM [Concomitant]

REACTIONS (1)
  - BLINDNESS UNILATERAL [None]
